FAERS Safety Report 16724808 (Version 2)
Quarter: 2019Q3

REPORT INFORMATION
  Report Type: Report from Study
  Country: None (occurrence: CO)
  Receive Date: 20190821
  Receipt Date: 20190910
  Transmission Date: 20191005
  Serious: Yes (Other)
  Sender: FDA-Public Use
  Company Number: CO-ABBVIE-19K-036-2892660-00

PATIENT
  Age: 49 Year
  Sex: Female
  Weight: 62 kg

DRUGS (4)
  1. PREGABALIN. [Concomitant]
     Active Substance: PREGABALIN
     Indication: FIBROMYALGIA
     Route: 048
  2. BUPRENORFINA [Concomitant]
     Active Substance: BUPRENORPHINE
     Indication: PAIN
     Route: 062
  3. HUMIRA [Suspect]
     Active Substance: ADALIMUMAB
     Indication: ANKYLOSING SPONDYLITIS
     Route: 058
     Dates: start: 20180518, end: 20190618
  4. DORIXINA RELAX [Concomitant]
     Indication: PRODUCT USED FOR UNKNOWN INDICATION
     Route: 065

REACTIONS (7)
  - Odynophagia [Recovered/Resolved]
  - Polyp [Not Recovered/Not Resolved]
  - Catheter placement [Recovering/Resolving]
  - Liver disorder [Not Recovered/Not Resolved]
  - Influenza [Recovered/Resolved]
  - Ischaemia [Not Recovered/Not Resolved]
  - Influenza [Not Recovered/Not Resolved]

NARRATIVE: CASE EVENT DATE: 20180802
